FAERS Safety Report 6887898-2 (Version None)
Quarter: 2010Q3

REPORT INFORMATION
  Report Type: 
  Country: None (occurrence: None)
  Receive Date: 20100726
  Receipt Date: 20100716
  Transmission Date: 20110219
  Serious: Yes (Hospitalization)
  Sender: FDA-Public Use
  Company Number: 2010SP024506

PATIENT
  Age: 57 Year

DRUGS (3)
  1. MIRTAZAPINE [Suspect]
     Indication: DEPRESSION
     Dosage: 15 MG;QD;PO
     Route: 048
     Dates: start: 20100406
  2. MEILAX  ETHYL LOFLAZEPATE [Concomitant]
  3. TEPRENONE [Concomitant]

REACTIONS (12)
  - ALTERED STATE OF CONSCIOUSNESS [None]
  - ANXIETY [None]
  - DEPRESSION [None]
  - DIZZINESS [None]
  - ENCEPHALITIS HERPES [None]
  - FEELING COLD [None]
  - HERPES VIRUS INFECTION [None]
  - HYPOCHONDRIASIS [None]
  - INAPPROPRIATE ANTIDIURETIC HORMONE SECRETION [None]
  - MALAISE [None]
  - MENTAL DISORDER [None]
  - NAUSEA [None]
